FAERS Safety Report 20916740 (Version 1)
Quarter: 2022Q2

REPORT INFORMATION
  Report Type: Spontaneous
  Country: SI (occurrence: SI)
  Receive Date: 20220605
  Receipt Date: 20220605
  Transmission Date: 20220721
  Serious: Yes (Other)
  Sender: FDA-Public Use
  Company Number: SI-NOVARTISPH-NVSC2022SI124336

PATIENT
  Age: 7 Decade
  Sex: Male

DRUGS (6)
  1. LENALIDOMIDE [Suspect]
     Active Substance: LENALIDOMIDE
     Indication: Plasmacytoma
     Dosage: 2.5 MG (21 DAYS IN A ROW)
     Route: 048
  2. DEXAMETHASONE [Suspect]
     Active Substance: DEXAMETHASONE
     Indication: Plasmacytoma
     Dosage: 40 MG, QW
     Route: 048
  3. DARZALEX [Suspect]
     Active Substance: DARATUMUMAB
     Indication: Product used for unknown indication
     Dosage: 1800 MG
     Route: 058
  4. DARZALEX [Suspect]
     Active Substance: DARATUMUMAB
     Indication: Plasmacytoma
     Dosage: 16 MG/KG, Q4W (3-6 CYCLE)
     Route: 042
  5. DARZALEX [Suspect]
     Active Substance: DARATUMUMAB
     Dosage: 16 MG/KG, QW (1 AND 2 CYCLE)
     Route: 042
  6. DARZALEX [Suspect]
     Active Substance: DARATUMUMAB
     Dosage: 16 MG/KG (3-6 CYCLE)
     Route: 042

REACTIONS (9)
  - Inguinal hernia [Unknown]
  - COVID-19 [Unknown]
  - Rotator cuff syndrome [Unknown]
  - Enthesopathy [Unknown]
  - Varicella zoster virus infection [Unknown]
  - Spinal disorder [Unknown]
  - Neutropenia [Unknown]
  - Gastroenteritis [Unknown]
  - Sepsis [Unknown]

NARRATIVE: CASE EVENT DATE: 20200601
